FAERS Safety Report 16789689 (Version 2)
Quarter: 2019Q3

REPORT INFORMATION
  Report Type: Report from Study
  Country: IT (occurrence: IT)
  Receive Date: 20190910
  Receipt Date: 20190913
  Transmission Date: 20191005
  Serious: Yes (Other)
  Sender: FDA-Public Use
  Company Number: IT-MYLANLABS-2019M1083676

PATIENT
  Age: 73 Year
  Sex: Female

DRUGS (7)
  1. DOXAZOSIN [Concomitant]
     Active Substance: DOXAZOSIN MESYLATE
     Dosage: 1 MILLIGRAM, QD
  2. MIRTAZAPINE. [Suspect]
     Active Substance: MIRTAZAPINE
     Indication: PRODUCT USED FOR UNKNOWN INDICATION
     Dosage: 210 MILLIGRAM, TOTAL
  3. ATORVASTATIN [Concomitant]
     Active Substance: ATORVASTATIN
     Dosage: 10 MILLIGRAM, QD
  4. METFORMIN [Concomitant]
     Active Substance: METFORMIN HYDROCHLORIDE
     Dosage: 2000 MILLIGRAM, QD
  5. REPAGLINIDE. [Concomitant]
     Active Substance: REPAGLINIDE
     Dosage: 2 MILLIGRAM, QD
  6. ANAFRANIL [Concomitant]
     Active Substance: CLOMIPRAMINE HYDROCHLORIDE
     Dosage: 75 MILLIGRAM, QD
  7. SONIREM [Suspect]
     Active Substance: ZOLPIDEM TARTRATE
     Indication: PRODUCT USED FOR UNKNOWN INDICATION
     Dosage: UNK

REACTIONS (7)
  - Cognitive disorder [Unknown]
  - Intentional product misuse [Unknown]
  - Mouth haemorrhage [Unknown]
  - Toxicity to various agents [Unknown]
  - Hypertension [Unknown]
  - Swelling [Unknown]
  - Drug abuse [Unknown]

NARRATIVE: CASE EVENT DATE: 20190107
